FAERS Safety Report 10080999 (Version 1)
Quarter: 2014Q2

REPORT INFORMATION
  Report Type: Spontaneous
  Country: US (occurrence: None)
  Receive Date: 20140414
  Receipt Date: 20140414
  Transmission Date: 20141212
  Serious: Yes (Hospitalization)
  Sender: FDA-Public Use
  Company Number: UTC-046939

PATIENT
  Age: 72 Year
  Sex: 0
  Weight: 72.72 kg

DRUGS (2)
  1. REMODULIN [Suspect]
     Indication: COR PULMONALE CHRONIC
     Dosage: 57.6 UG/KG (0/04 UG/KG 1 IN 1 MIN)
     Route: 058
     Dates: start: 20120328
  2. TRACLEER(BOSENTAN) [Concomitant]

REACTIONS (1)
  - Hip fracture [None]
